FAERS Safety Report 10698434 (Version 2)
Quarter: 2015Q2

REPORT INFORMATION
  Report Type: Spontaneous
  Country: US (occurrence: US)
  Receive Date: 20150108
  Receipt Date: 20150513
  Transmission Date: 20150821
  Serious: Yes (Other)
  Sender: FDA-Public Use
  Company Number: US-PFIZER INC-2015003212

PATIENT
  Age: 55 Year
  Sex: Male
  Weight: 82 kg

DRUGS (15)
  1. BENZTROPINE MESILATE [Concomitant]
     Active Substance: BENZTROPINE MESYLATE
     Dosage: 1 MG, 3X/DAY
     Route: 048
     Dates: start: 2014
  2. VITAMIN D3 [Concomitant]
     Active Substance: CHOLECALCIFEROL
     Dosage: 2000 IU, 1X/DAY
     Dates: start: 1995
  3. BUSPAR [Concomitant]
     Active Substance: BUSPIRONE HYDROCHLORIDE
     Dosage: 30 MG, 2X/DAY
     Route: 048
     Dates: start: 1995
  4. DULOXETINE [Concomitant]
     Active Substance: DULOXETINE
     Dosage: 120 MG, 1X/DAY
     Route: 048
     Dates: start: 1995
  5. XANAX [Concomitant]
     Active Substance: ALPRAZOLAM
     Dosage: 0.5 MG THREE TIMES DAILY AS NEEDED
     Route: 048
     Dates: start: 1995
  6. ADVAIR HFA [Concomitant]
     Active Substance: FLUTICASONE PROPIONATE\SALMETEROL XINAFOATE
     Dosage: 500/50 1 PUFF TWICE A DAY
     Route: 055
     Dates: start: 2000
  7. CYMBALTA [Concomitant]
     Active Substance: DULOXETINE HYDROCHLORIDE
     Dosage: UNK
  8. PROTONIX [Concomitant]
     Active Substance: PANTOPRAZOLE SODIUM
     Dosage: 80 MG, 2X/DAY
     Dates: start: 2013
  9. WELLBUTRIN XL [Concomitant]
     Active Substance: BUPROPION HYDROCHLORIDE
     Dosage: 450 MG, 1X/DAY
     Dates: start: 1995
  10. SPIRIVA [Concomitant]
     Active Substance: TIOTROPIUM BROMIDE MONOHYDRATE
     Dosage: 1 PUFF A DAY
     Route: 055
     Dates: start: 2007, end: 201501
  11. BACLOFEN. [Concomitant]
     Active Substance: BACLOFEN
     Dosage: 10 MG, 3X/DAY
  12. VENTOLIN [Concomitant]
     Active Substance: ALBUTEROL SULFATE
     Dosage: 2 PUFFS 3 TIMES A DAY AS NEEDED
     Route: 055
     Dates: start: 1990
  13. CHANTIX [Suspect]
     Active Substance: VARENICLINE TARTRATE
     Indication: SMOKING CESSATION THERAPY
     Dosage: 1 MG, 2X/DAY
     Route: 048
     Dates: start: 20141215
  14. DEPAKOTE [Concomitant]
     Active Substance: DIVALPROEX SODIUM
     Dosage: 1000 MG, 1X/DAY
     Dates: start: 1995
  15. TESTOSTERONE CIPIONATE [Concomitant]
     Active Substance: TESTOSTERONE
     Dosage: 100 MG, EVERY 2 WEEKS
     Route: 030
     Dates: start: 2012, end: 201504

REACTIONS (5)
  - Loss of consciousness [Recovered/Resolved]
  - Road traffic accident [Unknown]
  - Amnesia [Unknown]
  - Hypotension [Recovered/Resolved]
  - Seizure [Unknown]

NARRATIVE: CASE EVENT DATE: 201412
